FAERS Safety Report 6235037-3 (Version None)
Quarter: 2009Q2

REPORT INFORMATION
  Report Type: 
  Country: None (occurrence: None)
  Receive Date: 20090615
  Receipt Date: 20090610
  Transmission Date: 20091009
  Serious: Yes (Death)
  Sender: FDA-Public Use
  Company Number: CN-WYE-H09674509

PATIENT
  Age: 47 Year
  Sex: Male

DRUGS (3)
  1. TEMSIROLIMUS (TEMSIROLIMUS, CONCENTRATE FOR SOLUTION FOR INFUSION) [Suspect]
     Indication: RENAL CELL CARCINOMA
     Dosage: INTRAVENOUS ; 20 MG 1X PER 1 WK INTRAVENOUS
     Route: 042
     Dates: start: 20080711, end: 20090518
  2. TEMSIROLIMUS (TEMSIROLIMUS, CONCENTRATE FOR SOLUTION FOR INFUSION) [Suspect]
     Indication: RENAL CELL CARCINOMA
     Dosage: INTRAVENOUS ; 20 MG 1X PER 1 WK INTRAVENOUS
     Route: 042
     Dates: start: 20090519, end: 20090527
  3. PREDNISONE ACETATE (PREDNISONE ACETATE) [Concomitant]

REACTIONS (1)
  - SUDDEN DEATH [None]
